FAERS Safety Report 8394140-2 (Version None)
Quarter: 2012Q1

REPORT INFORMATION
  Report Type: 
  Country: None (occurrence: None)
  Receive Date: 20120323
  Receipt Date: 20111114
  Transmission Date: 20120608
  Serious: Yes (Hospitalization)
  Sender: FDA-Public Use
  Company Number: 163-21880-11050791

PATIENT
  Age: 55 Year
  Sex: Male

DRUGS (8)
  1. VITAMIN E [Concomitant]
  2. DEXAMETHASONE [Concomitant]
  3. REVLIMID [Suspect]
     Indication: MULTIPLE MYELOMA
     Dosage: 25 MG, 21 DAYS, PO
     Route: 048
     Dates: start: 20110317
  4. L-CARNITIDINE (L-CARNITIDINE PLUS CHROMIUM) [Concomitant]
  5. OMEPRAZOLE [Concomitant]
  6. DIOVAN [Concomitant]
  7. ZOMETA [Concomitant]
  8. VERAPAMIL [Concomitant]

REACTIONS (1)
  - UPPER RESPIRATORY TRACT INFECTION [None]
